FAERS Safety Report 6658061-5 (Version None)
Quarter: 2010Q1

REPORT INFORMATION
  Report Type: 
  Country: None (occurrence: None)
  Receive Date: 20100330
  Receipt Date: 20100311
  Transmission Date: 20100710
  Serious: Yes (Disabling, Other)
  Sender: FDA-Public Use
  Company Number: CA-MERCK-1003USA01754

PATIENT
  Age: 56 Year
  Sex: Male
  Weight: 79 kg

DRUGS (11)
  1. ZETIA [Suspect]
     Route: 048
  2. APO-DIAZEPAM [Concomitant]
     Route: 065
  3. APO-FOLIC [Concomitant]
     Route: 065
  4. APO-DILTIAZ [Concomitant]
     Route: 065
  5. ISMN [Concomitant]
     Route: 048
  6. ENTROPHEN [Concomitant]
     Route: 065
  7. METOPROLOL [Concomitant]
     Route: 048
  8. SEPTRA [Concomitant]
     Route: 065
  9. CYANOCOBALAMIN [Concomitant]
     Route: 065
  10. PYRIDOXINE [Concomitant]
     Route: 065
  11. VITAMIN D (UNSPECIFIED) [Concomitant]
     Route: 065

REACTIONS (5)
  - CHEST DISCOMFORT [None]
  - DISABILITY [None]
  - FATIGUE [None]
  - MUSCLE SPASMS [None]
  - VOMITING [None]
